FAERS Safety Report 4487717-8 (Version None)
Quarter: 2004Q4

REPORT INFORMATION
  Report Type: 
  Country: None (occurrence: None)
  Receive Date: 20041027
  Receipt Date: 20041027
  Transmission Date: 20050328
  Serious: Yes (Hospitalization)
  Sender: FDA-Public Use
  Company Number: None

PATIENT
  Age: 30 Year
  Sex: Male
  Weight: 87.0906 kg

DRUGS (4)
  1. PHENYTOIN [Suspect]
     Indication: CONVULSION PROPHYLAXIS
     Dosage: 100 MG TID
     Dates: start: 20040709, end: 20040725
  2. PHENYTOIN [Suspect]
     Indication: CONVULSION PROPHYLAXIS
     Dosage: 100 MG TID
     Dates: start: 20040715
  3. NAPROXEN [Concomitant]
  4. CEPHALEXIN [Concomitant]

REACTIONS (6)
  - BODY TEMPERATURE INCREASED [None]
  - LIP PAIN [None]
  - ORAL PAIN [None]
  - PRURITUS [None]
  - RASH [None]
  - SWOLLEN TONGUE [None]
